FAERS Safety Report 7151027-0 (Version None)
Quarter: 2010Q4

REPORT INFORMATION
  Report Type: 
  Country: None (occurrence: None)
  Receive Date: 20101210
  Receipt Date: 20101206
  Transmission Date: 20110411
  Serious: Yes (Hospitalization)
  Sender: FDA-Public Use
  Company Number: B0686277A

PATIENT
  Age: 71 Year
  Sex: Female
  Weight: 69 kg

DRUGS (13)
  1. ARIXTRA [Suspect]
     Route: 058
     Dates: start: 20101009, end: 20101022
  2. COAPROVEL [Concomitant]
     Route: 065
  3. CADUET [Concomitant]
     Route: 065
  4. CIPRALAN [Concomitant]
     Route: 065
  5. KARDEGIC [Concomitant]
     Route: 065
  6. SINGULAIR [Concomitant]
     Route: 065
  7. AERIUS [Concomitant]
     Route: 065
  8. EUPANTOL [Concomitant]
     Route: 065
  9. SYMBICORT [Concomitant]
     Route: 065
  10. DAFALGAN [Concomitant]
     Route: 065
  11. NITROGLYCERIN [Concomitant]
     Route: 065
  12. JANUMET [Concomitant]
     Route: 065
  13. STRUCTUM [Concomitant]
     Route: 065

REACTIONS (3)
  - DERMATITIS BULLOUS [None]
  - HAEMORRHAGE SUBCUTANEOUS [None]
  - SCAB [None]
